FAERS Safety Report 25954266 (Version 1)
Quarter: 2025Q4

REPORT INFORMATION
  Report Type: Spontaneous
  Country: EU (occurrence: EU)
  Receive Date: 20251023
  Receipt Date: 20251023
  Transmission Date: 20260117
  Serious: Yes (Hospitalization, Other)
  Sender: ABBVIE
  Company Number: EU-ABBOTT-08P-056-0491039-00

PATIENT
  Age: 74 Year
  Sex: Female

DRUGS (2)
  1. HUMIRA [Suspect]
     Active Substance: ADALIMUMAB
     Indication: Colitis ulcerative
     Route: 058
     Dates: start: 20080528, end: 20080528
  2. FLAGYL [Suspect]
     Active Substance: METRONIDAZOLE\METRONIDAZOLE HYDROCHLORIDE
     Indication: Clostridium difficile infection
     Route: 048
     Dates: start: 20020505, end: 20080602

REACTIONS (16)
  - Neuropathy peripheral [Not Recovered/Not Resolved]
  - Pain in extremity [Not Recovered/Not Resolved]
  - Hypoaesthesia [Not Recovered/Not Resolved]
  - Balance disorder [Not Recovered/Not Resolved]
  - Guillain-Barre syndrome [Unknown]
  - Gait inability [Unknown]
  - Neurological symptom [Unknown]
  - Polyneuropathy [Unknown]
  - Paraesthesia [Recovered/Resolved]
  - Movement disorder [Unknown]
  - Diplopia [Not Recovered/Not Resolved]
  - Condition aggravated [Unknown]
  - Nausea [Unknown]
  - Vomiting [Unknown]
  - Dysarthria [Unknown]
  - Visual impairment [Unknown]

NARRATIVE: CASE EVENT DATE: 20080501
